FAERS Safety Report 8364802-1 (Version None)
Quarter: 2012Q2

REPORT INFORMATION
  Report Type: 
  Country: None (occurrence: None)
  Receive Date: 20120516
  Receipt Date: 20120507
  Transmission Date: 20120825
  Serious: Yes (Hospitalization, Other)
  Sender: FDA-Public Use
  Company Number: GB-ASTRAZENECA-2012SE22243

PATIENT
  Age: 22287 Day
  Sex: Male

DRUGS (19)
  1. ANUSOL CREAM [Concomitant]
     Indication: ANTIINFLAMMATORY THERAPY
     Route: 054
     Dates: start: 20120222
  2. AZD6140 [Suspect]
     Route: 048
     Dates: start: 20120227
  3. RAMIPRIL [Concomitant]
     Indication: PROPHYLAXIS
     Route: 048
  4. FELODIPINE [Concomitant]
     Indication: HYPERTENSION
     Route: 048
  5. METFORMIN HCL [Concomitant]
     Indication: TYPE 2 DIABETES MELLITUS
     Route: 048
  6. AZD6140 [Suspect]
     Indication: CORONARY ARTERY DISEASE
     Route: 048
     Dates: start: 20111013, end: 20120224
  7. ACETAMINOPHEN AND CODEINE PHOSPHATE [Concomitant]
     Indication: ANALGESIC THERAPY
     Route: 048
     Dates: start: 20120222
  8. ANUSOL CREAM [Concomitant]
     Indication: LOCAL ANAESTHESIA
     Route: 054
     Dates: start: 20120222
  9. ASPIRIN [Concomitant]
     Route: 048
  10. BISOPROLOL FUMARATE [Concomitant]
     Indication: HYPERTENSION
     Route: 048
  11. GLYBURIDE [Concomitant]
     Indication: TYPE 2 DIABETES MELLITUS
     Route: 048
  12. PREDNISONE [Concomitant]
     Indication: COLITIS
     Route: 048
     Dates: start: 20120222
  13. ASACOL [Concomitant]
     Indication: COLITIS ULCERATIVE
     Route: 048
  14. RAMIPRIL [Concomitant]
     Indication: HYPERTENSION
     Route: 048
  15. BISOPROLOL FUMARATE [Concomitant]
     Indication: PROPHYLAXIS
     Route: 048
  16. LEVEMIR [Concomitant]
     Indication: TYPE 2 DIABETES MELLITUS
     Route: 058
  17. PREGABALIN [Concomitant]
     Indication: BACK PAIN
     Route: 048
  18. ATORVASTATIN CALCIUM [Concomitant]
     Indication: HYPERCHOLESTEROLAEMIA
     Route: 048
  19. MONOSORB XL [Concomitant]
     Indication: ANGINA PECTORIS
     Route: 048

REACTIONS (1)
  - LACUNAR INFARCTION [None]
